FAERS Safety Report 4424464-2 (Version None)
Quarter: 2004Q3

REPORT INFORMATION
  Report Type: 
  Country: None (occurrence: None)
  Receive Date: 20040812
  Receipt Date: 20040610
  Transmission Date: 20050211
  Serious: Yes (Hospitalization)
  Sender: FDA-Public Use
  Company Number: US-GLAXOSMITHKLINE-A0514107A

PATIENT
  Age: 71 Year
  Sex: Male
  Weight: 103.2 kg

DRUGS (10)
  1. ROSIGLITAZONE MALEATE [Suspect]
     Dosage: 4MG TWICE PER DAY
     Route: 048
     Dates: start: 20020926
  2. GLIMEPIRIDE [Suspect]
     Dosage: 8MG IN THE MORNING
     Route: 048
     Dates: start: 20020926
  3. GLARGINE [Suspect]
     Dosage: 15UNIT AT NIGHT
     Route: 058
     Dates: start: 20020926
  4. NOVOLOG [Suspect]
     Dosage: 8UNIT AT NIGHT
     Route: 058
     Dates: start: 20040121
  5. HYDROCHLOROTHIAZIDE [Concomitant]
     Dosage: 25MG PER DAY
  6. CLOPIDOGREL [Concomitant]
     Dosage: 75MG PER DAY
  7. CANDESARTAN [Concomitant]
     Dosage: 8MG PER DAY
  8. SIMVASTATIN [Concomitant]
     Dosage: 80MG AT NIGHT
  9. HYTRIN [Concomitant]
  10. NIASPAN [Concomitant]

REACTIONS (4)
  - CAROTID ARTERY STENOSIS [None]
  - HYPOGLYCAEMIA [None]
  - MOANING [None]
  - SOMNOLENCE [None]
